FAERS Safety Report 4430970-7 (Version None)
Quarter: 2004Q3

REPORT INFORMATION
  Report Type: 
  Country: None (occurrence: None)
  Receive Date: 20040824
  Receipt Date: 20040813
  Transmission Date: 20050211
  Serious: Yes (Hospitalization, Other)
  Sender: FDA-Public Use
  Company Number: JP-JNJFOC-20040704082

PATIENT
  Sex: Female

DRUGS (12)
  1. REMICADE [Suspect]
     Route: 042
  2. REMICADE [Suspect]
     Route: 042
  3. REMICADE [Suspect]
     Indication: RHEUMATOID ARTHRITIS
     Route: 042
  4. METHOTREXATE [Concomitant]
     Route: 049
  5. PREDONINE [Concomitant]
     Route: 049
  6. AZULFIDINE [Concomitant]
     Route: 049
  7. VOLTAREN-XR [Concomitant]
     Route: 049
  8. FOLIAMIN [Concomitant]
     Route: 049
  9. OMEPRAL [Concomitant]
     Route: 049
  10. DIFLUCAN [Concomitant]
     Route: 049
  11. ISCOTIN [Concomitant]
     Route: 049
  12. PYDOXAL [Concomitant]
     Route: 049

REACTIONS (2)
  - ABDOMINAL PAIN UPPER [None]
  - GAMMA-GLUTAMYLTRANSFERASE INCREASED [None]
